FAERS Safety Report 5449663-2 (Version None)
Quarter: 2007Q3

REPORT INFORMATION
  Report Type: 
  Country: None (occurrence: None)
  Receive Date: 20070910
  Receipt Date: 20070910
  Transmission Date: 20080115
  Serious: Yes (Other)
  Sender: FDA-Public Use
  Company Number: None

PATIENT
  Age: 10 Year
  Sex: Male
  Weight: 31.7518 kg

DRUGS (5)
  1. CORICIDIN [Suspect]
     Indication: DRUG USE FOR UNKNOWN INDICATION
     Dosage: 11 DF;ONCE;PO
     Route: 048
     Dates: start: 20070810, end: 20070810
  2. DEPAKOTE [Concomitant]
  3. RISPERDAL [Concomitant]
  4. CLONIDINE [Concomitant]
  5. LEXAPRO [Concomitant]

REACTIONS (2)
  - MEDICATION ERROR [None]
  - OVERDOSE [None]
